FAERS Safety Report 18358912 (Version 1)
Quarter: 2020Q4

REPORT INFORMATION
  Report Type: Report from Study
  Country: CO (occurrence: CO)
  Receive Date: 20201008
  Receipt Date: 20201008
  Transmission Date: 20210114
  Serious: Yes (Hospitalization, Other)
  Sender: FDA-Public Use
  Company Number: NVSC2020CO244568

PATIENT
  Age: 72 Year
  Sex: Male
  Weight: 55 kg

DRUGS (8)
  1. XOLAIR [Suspect]
     Active Substance: OMALIZUMAB
     Indication: ASTHMA
     Dosage: 300 MG, QMO
     Route: 058
  2. TRAYENTA DUO [Concomitant]
     Active Substance: LINAGLIPTIN\METFORMIN HYDROCHLORIDE
     Indication: DIABETES MELLITUS
     Dosage: 5 MG, QD
     Route: 048
  3. INSULIN [Concomitant]
     Active Substance: INSULIN NOS
     Indication: DIABETES MELLITUS
     Dosage: UNK (IN THE MORNING 30 UNITS, IN THE AFTERNOON 40 UNITS)
     Route: 058
  4. LOSARTAN. [Suspect]
     Active Substance: LOSARTAN
     Indication: HYPERTENSION
     Dosage: 50 MG EVERY 12 HOURS
     Route: 048
  5. SERTRALINE [Suspect]
     Active Substance: SERTRALINE HYDROCHLORIDE
     Indication: ANXIETY
     Dosage: UNK, QD
     Route: 048
  6. OLANZAPINE. [Suspect]
     Active Substance: OLANZAPINE
     Indication: ANXIETY
     Dosage: UNK, QD
     Route: 048
  7. OXYGEN. [Concomitant]
     Active Substance: OXYGEN
     Indication: PRODUCT USED FOR UNKNOWN INDICATION
     Dosage: UNK (6 MONTHS AGO)
     Route: 065
  8. CLONAZEPAM. [Concomitant]
     Active Substance: CLONAZEPAM
     Indication: ANXIETY
     Dosage: UNK, QD
     Route: 048

REACTIONS (12)
  - Respiratory disorder [Recovering/Resolving]
  - Abdominal distension [Recovering/Resolving]
  - Chest pain [Recovering/Resolving]
  - Nervous system disorder [Unknown]
  - Off label use [Unknown]
  - Chest discomfort [Unknown]
  - Dyspnoea [Unknown]
  - Chills [Recovered/Resolved]
  - SARS-CoV-2 antibody test positive [Recovered/Resolved]
  - Eating disorder [Recovering/Resolving]
  - Blood pressure increased [Recovering/Resolving]
  - Vomiting [Recovering/Resolving]

NARRATIVE: CASE EVENT DATE: 202006
